FAERS Safety Report 7376473-1 (Version None)
Quarter: 2011Q1

REPORT INFORMATION
  Report Type: 
  Country: None (occurrence: None)
  Receive Date: 20110325
  Receipt Date: 20110322
  Transmission Date: 20110831
  Serious: Yes (Other)
  Sender: FDA-Public Use
  Company Number: US-PFIZER INC-2011047876

PATIENT
  Sex: Female

DRUGS (2)
  1. CYMBALTA [Suspect]
     Indication: DEPRESSION
     Dosage: UNK
     Dates: start: 20100601
  2. LYRICA [Suspect]
     Dosage: 150 MG, UNK
     Route: 048
     Dates: start: 20100801, end: 20110303

REACTIONS (7)
  - MANIA [None]
  - CONTUSION [None]
  - DECREASED APPETITE [None]
  - EUPHORIC MOOD [None]
  - NIGHT SWEATS [None]
  - INSOMNIA [None]
  - BIPOLAR DISORDER [None]
